FAERS Safety Report 6657462-9 (Version None)
Quarter: 2010Q1

REPORT INFORMATION
  Report Type: 
  Country: None (occurrence: None)
  Receive Date: 20100330
  Receipt Date: 20100319
  Transmission Date: 20100710
  Serious: Yes (Hospitalization, Other)
  Sender: FDA-Public Use
  Company Number: PHHY2010JP17485

PATIENT
  Sex: Male
  Weight: 75 kg

DRUGS (5)
  1. DIOVAN [Suspect]
     Dosage: 80 MG, QD
     Route: 048
     Dates: start: 20071002
  2. NORVASC [Concomitant]
     Indication: HYPERTENSION
     Dosage: 5 MG, UNK
     Route: 048
     Dates: start: 20071002
  3. BUFFERIN [Concomitant]
     Dosage: 81 MG, UNK
     Route: 048
     Dates: start: 20071002
  4. ALLORINE [Concomitant]
     Dosage: 100 MG, UNK
     Route: 048
     Dates: start: 20071002
  5. BENZBROMARONE [Concomitant]
     Dosage: 50 MG, UNK
     Route: 048
     Dates: start: 20071002

REACTIONS (4)
  - BLOOD CHOLESTEROL INCREASED [None]
  - BLOOD PRESSURE DIASTOLIC DECREASED [None]
  - BLOOD PRESSURE INCREASED [None]
  - LIP AND/OR ORAL CAVITY CANCER [None]
